FAERS Safety Report 6483095-3 (Version None)
Quarter: 2009Q4

REPORT INFORMATION
  Report Type: 
  Country: None (occurrence: None)
  Receive Date: 20091209
  Receipt Date: 20091201
  Transmission Date: 20100525
  Serious: Yes (Hospitalization)
  Sender: FDA-Public Use
  Company Number: US-ROCHE-667653

PATIENT
  Sex: Female
  Weight: 53.5 kg

DRUGS (1)
  1. CAPECITABINE [Suspect]
     Dosage: STRENGTH: 500, DOSE: 3 TABS IN MORNING AND 2 IN EVENING
     Route: 048
     Dates: start: 20080512, end: 20091102

REACTIONS (1)
  - MALIGNANT NEOPLASM PROGRESSION [None]
